FAERS Safety Report 8192845-X (Version None)
Quarter: 2012Q1

REPORT INFORMATION
  Report Type: 
  Country: None (occurrence: None)
  Receive Date: 20120308
  Receipt Date: 20120228
  Transmission Date: 20120608
  Serious: Yes (Hospitalization, Other)
  Sender: FDA-Public Use
  Company Number: CA-JNJFOC-20120300265

PATIENT
  Sex: Female

DRUGS (6)
  1. PANTOPRAZOLE SODIUM [Concomitant]
     Indication: GASTROOESOPHAGEAL REFLUX DISEASE
     Route: 048
  2. METHOTREXATE [Concomitant]
     Indication: RHEUMATOID ARTHRITIS
     Route: 048
  3. FOLIC ACID [Concomitant]
     Route: 048
  4. REMICADE [Suspect]
     Dosage: 17TH INFUSION
     Route: 042
     Dates: start: 20120103
  5. REMICADE [Suspect]
     Dosage: 18TH INFUSION.
     Route: 042
     Dates: start: 20120228
  6. REMICADE [Suspect]
     Indication: RHEUMATOID ARTHRITIS
     Route: 042
     Dates: start: 20090617

REACTIONS (7)
  - NAUSEA [None]
  - WEIGHT DECREASED [None]
  - PALLOR [None]
  - DECREASED APPETITE [None]
  - RENAL DISORDER [None]
  - CACHEXIA [None]
  - DEHYDRATION [None]
